FAERS Safety Report 8778394 (Version 1)
Quarter: 2012Q4

REPORT INFORMATION
  Report Type: 
  Country: TN (occurrence: TN)
  Receive Date: 20120912
  Receipt Date: 20120912
  Transmission Date: 20130627
  Serious: Yes (Death)
  Sender: FDA-Public Use
  Company Number: TN-SANOFI-AVENTIS-2012SA063973

PATIENT
  Age: 77 Year
  Sex: Female

DRUGS (11)
  1. PLAVIX [Suspect]
     Indication: DRUG-ELUTING CORONARY STENT PLACEMENT
     Route: 048
     Dates: start: 20101203, end: 20120513
  2. ASPEGIC [Concomitant]
     Route: 048
     Dates: end: 20120513
  3. ATORVASTATIN [Concomitant]
     Route: 048
     Dates: end: 20120512
  4. CORVASAL [Concomitant]
     Route: 048
     Dates: end: 20120513
  5. LOPRESSOR [Concomitant]
     Route: 048
     Dates: end: 20120513
  6. AMLOR [Concomitant]
     Route: 048
     Dates: end: 20120513
  7. APROVEL [Concomitant]
     Route: 048
     Dates: end: 20120513
  8. INSULIN [Concomitant]
     Route: 058
     Dates: start: 2006, end: 20120513
  9. TRAMAL [Concomitant]
     Route: 048
     Dates: end: 20120513
  10. STILNOX [Concomitant]
     Route: 048
     Dates: end: 20120512
  11. OMEPRAZOLE [Concomitant]
     Route: 048
     Dates: end: 20120512

REACTIONS (1)
  - Sudden death [Fatal]
